FAERS Safety Report 11051871 (Version 1)
Quarter: 2015Q2

REPORT INFORMATION
  Report Type: Spontaneous
  Country: US (occurrence: None)
  Receive Date: 20150420
  Receipt Date: 20150420
  Transmission Date: 20150821
  Serious: Yes (Hospitalization)
  Sender: FDA-Public Use
  Company Number: US-2015CRT000438

PATIENT
  Age: 56 Year
  Sex: Female
  Weight: 74.8 kg

DRUGS (8)
  1. MIDRIN (DICHLORALPHENAZONE, ISOMETHEPTENE, PARACETAMOL) [Concomitant]
     Active Substance: ACETAMINOPHEN\DICHLORALPHENAZONE\ISOMETHEPTENE
  2. KORLYM [Suspect]
     Active Substance: MIFEPRISTONE
     Indication: CUSHING^S SYNDROME
     Route: 048
     Dates: start: 201408, end: 201503
  3. POTASSIUM [Concomitant]
     Active Substance: POTASSIUM
  4. ATENOLOL. [Concomitant]
     Active Substance: ATENOLOL
  5. OMEPRAZOLE. [Concomitant]
     Active Substance: OMEPRAZOLE
  6. LEVOTHYROXINE [Concomitant]
     Active Substance: LEVOTHYROXINE
  7. NORTRIPTYLINE [Concomitant]
     Active Substance: NORTRIPTYLINE
  8. PHOSPHORUS [Concomitant]
     Active Substance: PHOSPHORUS

REACTIONS (4)
  - Cerebrovascular accident [None]
  - Pneumonia [None]
  - Vaginal haemorrhage [None]
  - Haemorrhage [None]

NARRATIVE: CASE EVENT DATE: 201503
